FAERS Safety Report 4668325-2 (Version None)
Quarter: 2005Q2

REPORT INFORMATION
  Report Type: 
  Country: None (occurrence: None)
  Receive Date: 20050519
  Receipt Date: 20050504
  Transmission Date: 20051028
  Serious: Yes (Other)
  Sender: FDA-Public Use
  Company Number: ENT-2005-0056 (0)

PATIENT
  Age: 68 Year
  Sex: Male

DRUGS (2)
  1. COMTAN [Suspect]
     Indication: PARKINSON'S DISEASE
     Dosage: 800 MG, 4 IN 1 D, ORAL
     Route: 048
     Dates: start: 20050101
  2. SINEMET [Concomitant]

REACTIONS (1)
  - GLOMERULONEPHRITIS MEMBRANOUS [None]
